FAERS Safety Report 18975425 (Version 1)
Quarter: 2021Q1

REPORT INFORMATION
  Report Type: Spontaneous
  Country: FR (occurrence: FR)
  Receive Date: 20210305
  Receipt Date: 20210305
  Transmission Date: 20210420
  Serious: Yes (Death)
  Sender: FDA-Public Use
  Company Number: FR-TEVA-2021-FR-1886557

PATIENT
  Age: 85 Year
  Sex: Female
  Weight: 44 kg

DRUGS (11)
  1. FUROSEMIDE. [Concomitant]
     Active Substance: FUROSEMIDE
  2. ALDACTONE [Concomitant]
     Active Substance: SPIRONOLACTONE
  3. ALPRAZOLAM. [Suspect]
     Active Substance: ALPRAZOLAM
     Indication: ANXIETY
     Dosage: 2DOSAGEFORM
     Route: 048
     Dates: start: 20191118, end: 20210114
  4. BISOPROLOL (FUMARATE ACIDE DE) [Concomitant]
     Active Substance: BISOPROLOL FUMARATE
  5. TEMESTA 1 MG, COMPRIME SECABLE [Suspect]
     Active Substance: LORAZEPAM
     Indication: ANXIETY
     Dosage: 3DOSAGEFORM
     Route: 048
     Dates: start: 20200205
  6. MIRTAZAPINE EG 15 MG, COMPRIME PELLICULE [Suspect]
     Active Substance: MIRTAZAPINE
     Indication: DEPRESSION
     Dosage: 1DOSAGEFORM
     Route: 048
     Dates: start: 20210114
  7. KENZEN [Concomitant]
     Active Substance: CANDESARTAN CILEXETIL
  8. ZYMAD [Concomitant]
     Active Substance: CHOLECALCIFEROL
  9. VENTOLINE [Concomitant]
     Active Substance: ALBUTEROL
  10. PARACETAMOL [Suspect]
     Active Substance: ACETAMINOPHEN
     Indication: PROPHYLAXIS
     Dosage: 4DOSAGEFORM
     Route: 048
     Dates: start: 20210113
  11. XARELTO [Concomitant]
     Active Substance: RIVAROXABAN

REACTIONS (1)
  - Encephalopathy [Fatal]

NARRATIVE: CASE EVENT DATE: 20210117
